FAERS Safety Report 9968244 (Version 1)
Quarter: 2014Q1

REPORT INFORMATION
  Report Type: Report from Study
  Country: US (occurrence: US)
  Receive Date: 20140306
  Receipt Date: 20140306
  Transmission Date: 20141002
  Serious: No
  Sender: FDA-Public Use
  Company Number: US-ABBVIE-13P-163-1140464-00

PATIENT
  Age: 26 Year
  Sex: Male

DRUGS (7)
  1. HUMIRA [Suspect]
     Indication: COLITIS ULCERATIVE
     Dates: start: 20130816, end: 20130816
  2. HUMIRA [Suspect]
  3. SERTRALINE [Concomitant]
     Indication: ANXIETY
  4. SERTRALINE [Concomitant]
     Indication: DEPRESSION
  5. PANTOPROZOLE [Concomitant]
     Indication: GASTRITIS PROPHYLAXIS
  6. MULTIVITAMIN [Concomitant]
     Indication: PRODUCT USED FOR UNKNOWN INDICATION
  7. FLORASTOR [Concomitant]
     Indication: PRODUCT USED FOR UNKNOWN INDICATION

REACTIONS (2)
  - Nervousness [Recovered/Resolved]
  - Injection site pain [Recovered/Resolved]
